FAERS Safety Report 24224323 (Version 1)
Quarter: 2024Q3

REPORT INFORMATION
  Report Type: Spontaneous
  Country: US (occurrence: None)
  Receive Date: 20240818
  Receipt Date: 20240818
  Transmission Date: 20241017
  Serious: Yes (Other)
  Sender: Public
  Company Number: None

PATIENT
  Age: 44 Year
  Sex: Female
  Weight: 112.95 kg

DRUGS (2)
  1. QELBREE [Suspect]
     Active Substance: VILOXAZINE HYDROCHLORIDE
     Indication: Attention deficit hyperactivity disorder
     Dosage: 1 CAPSULE DALY ORAL
     Route: 048
     Dates: start: 20240814, end: 20240817
  2. Prep Truvada 200/300 [Concomitant]

REACTIONS (4)
  - Anger [None]
  - Insomnia [None]
  - Economic problem [None]
  - Incorrect dose administered [None]

NARRATIVE: CASE EVENT DATE: 20240817
